FAERS Safety Report 20794371 (Version 2)
Quarter: 2023Q4

REPORT INFORMATION
  Report Type: Spontaneous
  Country: CA (occurrence: None)
  Receive Date: 20220506
  Receipt Date: 20231117
  Transmission Date: 20240110
  Serious: Yes (Other)
  Sender: FDA-Public Use
  Company Number: CA-ROCHE-3090192

PATIENT
  Age: 37 Year
  Sex: Male

DRUGS (1)
  1. RITUXIMAB [Suspect]
     Active Substance: RITUXIMAB
     Indication: Relapsing-remitting multiple sclerosis
     Route: 042

REACTIONS (3)
  - Lymph node abscess [Recovered/Resolved]
  - Lymphadenopathy [Recovered/Resolved]
  - Product use in unapproved indication [Unknown]
